FAERS Safety Report 17840262 (Version 7)
Quarter: 2022Q1

REPORT INFORMATION
  Report Type: Spontaneous
  Country: PL (occurrence: PL)
  Receive Date: 20200529
  Receipt Date: 20220330
  Transmission Date: 20220424
  Serious: Yes (Other)
  Sender: FDA-Public Use
  Company Number: PL-PFIZER INC-2020195183

PATIENT
  Age: 9 Year
  Sex: Male

DRUGS (27)
  1. TOPOTECAN [Suspect]
     Active Substance: TOPOTECAN HYDROCHLORIDE
     Indication: Alveolar rhabdomyosarcoma
     Dosage: 28 MILLIGRAM/SQ. METER
     Route: 065
  2. TOPOTECAN [Suspect]
     Active Substance: TOPOTECAN HYDROCHLORIDE
     Indication: Rhabdomyosarcoma
  3. TOPOTECAN [Suspect]
     Active Substance: TOPOTECAN HYDROCHLORIDE
     Indication: Acute myeloid leukaemia
  4. IRINOTECAN [Suspect]
     Active Substance: IRINOTECAN
     Indication: Alveolar rhabdomyosarcoma
     Dosage: 65 MILLIGRAM/SQ. METER
     Route: 065
  5. IRINOTECAN [Suspect]
     Active Substance: IRINOTECAN
     Indication: Rhabdomyosarcoma
  6. DOXORUBICIN [Suspect]
     Active Substance: DOXORUBICIN
     Indication: Alveolar rhabdomyosarcoma
     Dosage: 160 MILLIGRAM/SQ. METER
  7. DOXORUBICIN [Suspect]
     Active Substance: DOXORUBICIN
     Indication: Rhabdomyosarcoma
     Dosage: 160 MILLIGRAM
     Route: 065
  8. DOXORUBICIN [Suspect]
     Active Substance: DOXORUBICIN
     Indication: Acute myeloid leukaemia
  9. ETOPOSIDE [Suspect]
     Active Substance: ETOPOSIDE
     Indication: Alveolar rhabdomyosarcoma
     Dosage: 3600 MILLIGRAM/SQ. METER
     Route: 042
  10. ETOPOSIDE [Suspect]
     Active Substance: ETOPOSIDE
     Indication: Acute myeloid leukaemia
  11. CYTARABINE [Suspect]
     Active Substance: CYTARABINE
     Indication: Alveolar rhabdomyosarcoma
     Dosage: UNK
     Route: 065
  12. FLUDARABINE [Suspect]
     Active Substance: FLUDARABINE PHOSPHATE
     Indication: Alveolar rhabdomyosarcoma
     Dosage: UNK
  13. CARBOPLATIN [Suspect]
     Active Substance: CARBOPLATIN
     Indication: Alveolar rhabdomyosarcoma
     Dosage: 6600 MILLIGRAM/SQ. METER
     Route: 065
  14. CARBOPLATIN [Suspect]
     Active Substance: CARBOPLATIN
     Indication: Rhabdomyosarcoma
  15. CARBOPLATIN [Suspect]
     Active Substance: CARBOPLATIN
     Indication: Acute myeloid leukaemia
  16. IFOSFAMIDE [Suspect]
     Active Substance: IFOSFAMIDE
     Indication: Alveolar rhabdomyosarcoma
     Dosage: 54000 MILLIGRAM/SQ. METER
     Route: 065
  17. IFOSFAMIDE [Suspect]
     Active Substance: IFOSFAMIDE
     Indication: Rhabdomyosarcoma
  18. ACTINOMYCIN D [Suspect]
     Active Substance: DACTINOMYCIN
     Indication: Alveolar rhabdomyosarcoma
     Dosage: 3 MILLIGRAM/SQ. METER
  19. TROFOSFAMIDE [Suspect]
     Active Substance: TROFOSFAMIDE
     Indication: Alveolar rhabdomyosarcoma
     Dosage: 12000 MILLIGRAM/SQ. METER
  20. TROFOSFAMIDE [Suspect]
     Active Substance: TROFOSFAMIDE
     Dosage: 54000 MILLIGRAM/SQ. METER
  21. VINCRISTINE [Suspect]
     Active Substance: VINCRISTINE
     Indication: Alveolar rhabdomyosarcoma
     Dosage: 16.5 MILLIGRAM/SQ. METER
     Route: 065
  22. VINCRISTINE [Suspect]
     Active Substance: VINCRISTINE
     Indication: Rhabdomyosarcoma
  23. ETOPOSIDE [Suspect]
     Active Substance: ETOPOSIDE
     Indication: Alveolar rhabdomyosarcoma
     Dosage: 2000 MILLIGRAM/SQ. METER
     Route: 048
  24. CYCLOPHOSPHAMIDE [Suspect]
     Active Substance: CYCLOPHOSPHAMIDE
     Indication: Alveolar rhabdomyosarcoma
     Dosage: THERAPY ACCORDING TO CWS-2002 CUMULATIVE DOSE: 1000 MG/M2
     Route: 065
  25. CYCLOPHOSPHAMIDE [Suspect]
     Active Substance: CYCLOPHOSPHAMIDE
     Indication: Rhabdomyosarcoma
  26. IDARUBICIN HYDROCHLORIDE [Suspect]
     Active Substance: IDARUBICIN HYDROCHLORIDE
     Indication: Alveolar rhabdomyosarcoma
     Dosage: CUMULATIVE DOSES: 80MG/M2
     Route: 065
  27. IDARUBICIN HYDROCHLORIDE [Suspect]
     Active Substance: IDARUBICIN HYDROCHLORIDE
     Indication: Rhabdomyosarcoma

REACTIONS (16)
  - Neoplasm progression [Unknown]
  - Malignant neoplasm progression [Unknown]
  - Acute myeloid leukaemia [Not Recovered/Not Resolved]
  - Rhabdomyosarcoma recurrent [Not Recovered/Not Resolved]
  - Myelodysplastic syndrome transformation [Unknown]
  - Myelodysplastic syndrome [Not Recovered/Not Resolved]
  - Refractory anaemia with an excess of blasts [Unknown]
  - Hyperleukocytosis [Unknown]
  - Chromosome analysis abnormal [Unknown]
  - Hepatosplenomegaly [Unknown]
  - Pneumonia fungal [Unknown]
  - Thrombocytopenia [Unknown]
  - Anaemia [Unknown]
  - Toxicity to various agents [Unknown]
  - Product use in unapproved indication [Unknown]
  - Off label use [Unknown]

NARRATIVE: CASE EVENT DATE: 20090101
